FAERS Safety Report 5524587-0 (Version None)
Quarter: 2007Q4

REPORT INFORMATION
  Report Type: 
  Country: None (occurrence: None)
  Receive Date: 20071123
  Receipt Date: 20071112
  Transmission Date: 20080405
  Serious: Yes (Hospitalization)
  Sender: FDA-Public Use
  Company Number: US-JNJFOC-20071104474

PATIENT
  Sex: Male
  Weight: 76.2 kg

DRUGS (3)
  1. FENTANYL TRANSDERMAL SYSTEM [Suspect]
     Indication: PAIN
     Route: 062
  2. DURAGESIC-100 [Suspect]
     Indication: PAIN
     Route: 062
  3. OXYCODONE HCL [Concomitant]
     Indication: BREAKTHROUGH PAIN
     Route: 048

REACTIONS (5)
  - HIP FRACTURE [None]
  - INCORRECT DRUG ADMINISTRATION DURATION [None]
  - NEURALGIA [None]
  - NONSPECIFIC REACTION [None]
  - WRONG TECHNIQUE IN DRUG USAGE PROCESS [None]
